FAERS Safety Report 13697791 (Version 3)
Quarter: 2018Q2

REPORT INFORMATION
  Report Type: Report from Study
  Country: JP (occurrence: JP)
  Receive Date: 20170628
  Receipt Date: 20180413
  Transmission Date: 20180711
  Serious: Yes (Hospitalization)
  Sender: FDA-Public Use
  Company Number: JP-PFIZER INC-2017273486

PATIENT
  Age: 84 Year
  Sex: Female
  Weight: 32.3 kg

DRUGS (8)
  1. PREDNISOLONE. [Suspect]
     Active Substance: PREDNISOLONE
     Dosage: 6 MG, DAILY
     Route: 048
     Dates: start: 20170426
  2. PREDNISOLONE. [Suspect]
     Active Substance: PREDNISOLONE
     Indication: RHEUMATOID ARTHRITIS
     Dosage: 10 MG, DAILY
     Route: 048
     Dates: end: 20170425
  3. XELJANZ [Suspect]
     Active Substance: TOFACITINIB CITRATE
     Indication: RHEUMATOID ARTHRITIS
     Dosage: 5 MG, 2X/DAY
     Route: 048
     Dates: start: 20161122
  4. EDIROL [Concomitant]
     Active Substance: ELDECALCITOL
     Route: 048
  5. FOLIAMIN [Concomitant]
     Active Substance: FOLIC ACID
     Route: 048
  6. METHOTREXATE SODIUM. [Concomitant]
     Active Substance: METHOTREXATE SODIUM
     Indication: RHEUMATOID ARTHRITIS
     Dosage: 8 MG, WEEKLY
     Dates: end: 20170524
  7. BONOTEO [Concomitant]
     Active Substance: MINODRONIC ACID
     Route: 048
  8. LOXONIN [Concomitant]
     Active Substance: LOXOPROFEN SODIUM
     Route: 062

REACTIONS (1)
  - Enteritis infectious [Recovering/Resolving]

NARRATIVE: CASE EVENT DATE: 20170310
